FAERS Safety Report 8694630 (Version 2)
Quarter: 2012Q4

REPORT INFORMATION
  Report Type: 
  Country: GB (occurrence: GB)
  Receive Date: 20120731
  Receipt Date: 20120926
  Transmission Date: 20130627
  Serious: Yes (Other)
  Sender: FDA-Public Use
  Company Number: GB-GLAXOSMITHKLINE-B0816329A

PATIENT
  Age: 39 Year
  Sex: Male
  Weight: 64 kg

DRUGS (4)
  1. LAMOTRIGINE [Suspect]
     Indication: EPILEPSY
     Dosage: 75MG Per day
     Dates: start: 2008
  2. LAMOTRIGINE [Suspect]
     Indication: EPILEPSY
     Dosage: 100MG Per day
  3. LORATADINE [Concomitant]
     Indication: SEASONAL ALLERGY
     Dosage: 1IUAX Per day
  4. ANTI-EPILEPTIC MEDICATION [Concomitant]

REACTIONS (18)
  - Slow response to stimuli [Unknown]
  - Dermatitis allergic [Recovered/Resolved]
  - Fatigue [Unknown]
  - Somnolence [Unknown]
  - Pruritus [Unknown]
  - Feeling hot [Unknown]
  - Erythema [Unknown]
  - Ear discomfort [Unknown]
  - Rash [Recovered/Resolved]
  - Malaise [Unknown]
  - Food interaction [Unknown]
  - Aggression [Recovered/Resolved]
  - Mood swings [Recovered/Resolved]
  - Drug ineffective [Unknown]
  - Rash macular [Unknown]
  - Dysarthria [Unknown]
  - Erythema [Unknown]
  - Swelling face [Unknown]
